FAERS Safety Report 25362436 (Version 1)
Quarter: 2025Q2

REPORT INFORMATION
  Report Type: Other
  Country: FR (occurrence: FR)
  Receive Date: 20250527
  Receipt Date: 20250527
  Transmission Date: 20250717
  Serious: Yes (Death, Hospitalization, Other)
  Sender: STRIDES
  Company Number: FR-TAKEDA-2017TEU002474

PATIENT
  Age: 71 Year
  Sex: Male
  Weight: 113.4 kg

DRUGS (26)
  1. METOCLOPRAMIDE HYDROCHLORIDE [Suspect]
     Active Substance: METOCLOPRAMIDE HYDROCHLORIDE
     Indication: Product used for unknown indication
     Route: 065
  2. VANCOMYCIN [Suspect]
     Active Substance: VANCOMYCIN
     Indication: Product used for unknown indication
     Route: 065
  3. PANTOPRAZOLE [Suspect]
     Active Substance: PANTOPRAZOLE
     Indication: Product used for unknown indication
     Route: 042
     Dates: start: 20161225, end: 20170119
  4. ACETAMINOPHEN\TRAMADOL [Suspect]
     Active Substance: ACETAMINOPHEN\TRAMADOL
     Indication: Product used for unknown indication
     Route: 048
     Dates: start: 20161201, end: 20170119
  5. RACECADOTRIL [Suspect]
     Active Substance: RACECADOTRIL
     Indication: Product used for unknown indication
     Route: 048
     Dates: start: 20161209, end: 20170119
  6. CUBICIN [Suspect]
     Active Substance: DAPTOMYCIN
     Indication: Product used for unknown indication
     Route: 042
     Dates: start: 20170110
  7. CUBICIN [Suspect]
     Active Substance: DAPTOMYCIN
     Route: 042
     Dates: start: 20170110, end: 20170201
  8. PIPERACILLIN AND TAZOBACTAM [Suspect]
     Active Substance: PIPERACILLIN SODIUM\TAZOBACTAM SODIUM
     Indication: Skin infection
     Route: 042
     Dates: start: 20161204, end: 20170130
  9. LINEZOLID [Suspect]
     Active Substance: LINEZOLID
     Indication: Skin infection
     Route: 048
     Dates: start: 20161222, end: 20170110
  10. BUDESONIDE\FORMOTEROL FUMARATE [Suspect]
     Active Substance: BUDESONIDE\FORMOTEROL FUMARATE
     Indication: Product used for unknown indication
     Dates: start: 20161220, end: 20170119
  11. PRIMPERAN [Suspect]
     Active Substance: METOCLOPRAMIDE HYDROCHLORIDE
     Indication: Product used for unknown indication
     Route: 048
     Dates: start: 20161224, end: 20170119
  12. ULTRAVIST [Suspect]
     Active Substance: IOPROMIDE
     Indication: Chest scan
     Route: 042
     Dates: start: 20170116, end: 20170116
  13. ULTRAVIST [Suspect]
     Active Substance: IOPROMIDE
     Route: 042
  14. QUESTRAN [Suspect]
     Active Substance: CHOLESTYRAMINE
     Indication: Product used for unknown indication
     Route: 048
     Dates: start: 20161216, end: 20170119
  15. NEFOPAM [Suspect]
     Active Substance: NEFOPAM
     Indication: Product used for unknown indication
     Route: 042
     Dates: start: 20161202, end: 20170119
  16. RIFADIN [Suspect]
     Active Substance: RIFAMPIN
     Indication: Product used for unknown indication
     Route: 065
  17. RIFAMPIN [Suspect]
     Active Substance: RIFAMPIN
     Indication: Product used for unknown indication
     Route: 065
  18. POLARAMINE [Concomitant]
     Active Substance: DEXCHLORPHENIRAMINE MALEATE
     Indication: Product used for unknown indication
     Route: 065
  19. LANTUS [Concomitant]
     Active Substance: INSULIN GLARGINE
     Indication: Product used for unknown indication
     Route: 065
  20. INSULIN HUMAN [Concomitant]
     Active Substance: INSULIN HUMAN
     Indication: Product used for unknown indication
     Route: 065
  21. POTASSIUM CHLORIDE [Concomitant]
     Active Substance: POTASSIUM CHLORIDE
     Indication: Product used for unknown indication
     Route: 065
  22. DUPHALAC [Concomitant]
     Active Substance: LACTULOSE
     Indication: Product used for unknown indication
     Route: 065
  23. LOPERAMIDE [Concomitant]
     Active Substance: LOPERAMIDE
     Indication: Product used for unknown indication
     Route: 065
  24. KARDEGIC [Concomitant]
     Active Substance: ASPIRIN DL-LYSINE
     Indication: Product used for unknown indication
     Route: 065
  25. FUROSEMIDE [Concomitant]
     Active Substance: FUROSEMIDE
     Indication: Product used for unknown indication
     Route: 065
  26. LOVENOX [Concomitant]
     Active Substance: ENOXAPARIN SODIUM
     Indication: Product used for unknown indication
     Route: 065
     Dates: start: 20170114

REACTIONS (18)
  - Death [Fatal]
  - Sepsis [Fatal]
  - Eczema [Fatal]
  - Pulmonary interstitial emphysema syndrome [Fatal]
  - Generalised oedema [Fatal]
  - Hyperammonaemia [Fatal]
  - Dyspnoea [Fatal]
  - Diffuse alveolar damage [Fatal]
  - Hepatic encephalopathy [Fatal]
  - Glomerular filtration rate decreased [Fatal]
  - Rectal haemorrhage [Fatal]
  - Restlessness [Fatal]
  - Alveolar lung disease [Fatal]
  - Rash maculo-papular [Fatal]
  - Acute kidney injury [Fatal]
  - Eosinophilia [Fatal]
  - Thrombocytopenia [Fatal]
  - Eosinophilic pneumonia [Fatal]

NARRATIVE: CASE EVENT DATE: 20161227
